FAERS Safety Report 5146385-2 (Version None)
Quarter: 2006Q4

REPORT INFORMATION
  Report Type: 
  Country: None (occurrence: None)
  Receive Date: 20061108
  Receipt Date: 20061106
  Transmission Date: 20070319
  Serious: Yes (Other)
  Sender: FDA-Public Use
  Company Number: FR-ROXANE LABORATORIES, INC-2006-DE-05849GD

PATIENT

DRUGS (2)
  1. MORPHINE [Suspect]
     Indication: PROCEDURAL PAIN
     Dosage: 0.25 MG/H (INFUSION RATE WAS REDUCED IF MOTOR BLOCK WAS ABOVE 0 ACCORDING TO A MODIFIED BROMAGE SCAL
     Route: 008
  2. BUPIVACAINE [Suspect]
     Indication: PROCEDURAL PAIN
     Dosage: 0.125%, 10 ML/H
     Route: 008

REACTIONS (2)
  - ANAESTHETIC COMPLICATION [None]
  - HYPOTENSION [None]
